FAERS Safety Report 8506646-3 (Version None)
Quarter: 2012Q3

REPORT INFORMATION
  Report Type: 
  Country: None (occurrence: None)
  Receive Date: 20120712
  Receipt Date: 20120703
  Transmission Date: 20120928
  Serious: Yes (Hospitalization)
  Sender: FDA-Public Use
  Company Number: PHHY2012US056483

PATIENT
  Age: 88 Year
  Sex: Female

DRUGS (4)
  1. NAPROXEN SODIUM [Suspect]
     Indication: PAIN
     Dosage: 220 MG, BID
     Route: 048
  2. VITAMIN B-12 [Concomitant]
     Dosage: 1000 UG, UNK
  3. LISINOPRIL [Concomitant]
     Dosage: 10 MG, UNK
     Route: 048
  4. CHLORTHALIDONE [Concomitant]
     Dosage: 25 MG, UNK
     Route: 048

REACTIONS (12)
  - MOVEMENT DISORDER [None]
  - ASTHENIA [None]
  - FATIGUE [None]
  - IRON DEFICIENCY ANAEMIA [None]
  - URINARY TRACT INFECTION [None]
  - WEIGHT DECREASED [None]
  - DUODENAL ULCER [None]
  - ATRIAL FIBRILLATION [None]
  - GASTRIC ULCER [None]
  - BLOOD GLUCOSE INCREASED [None]
  - BLOOD UREA INCREASED [None]
  - GASTROINTESTINAL ULCER HAEMORRHAGE [None]
